FAERS Safety Report 21178597 (Version 1)
Quarter: 2022Q3

REPORT INFORMATION
  Report Type: Spontaneous
  Country: FR (occurrence: FR)
  Receive Date: 20220805
  Receipt Date: 20220805
  Transmission Date: 20221027
  Serious: Yes (Death, Hospitalization, Other)
  Sender: FDA-Public Use
  Company Number: FR-EMA-DD-20190627-kumarsingh_a-104821

PATIENT
  Age: 78 Year
  Sex: Male
  Weight: 58 kg

DRUGS (17)
  1. CLINDAMYCIN HYDROCHLORIDE [Suspect]
     Active Substance: CLINDAMYCIN HYDROCHLORIDE
     Indication: Arthritis bacterial
     Dosage: 600 MG,TID
     Dates: start: 20120625
  2. PIPERACILLIN [Suspect]
     Active Substance: PIPERACILLIN
     Indication: Arthritis bacterial
     Dosage: 8 G,QD
     Dates: start: 20120629
  3. CEFOTAXIME SODIUM [Suspect]
     Active Substance: CEFOTAXIME SODIUM
     Indication: Arthritis bacterial
     Dosage: 2 G, TID
     Dates: start: 20120601, end: 20120607
  4. CEFOTAXIME SODIUM [Suspect]
     Active Substance: CEFOTAXIME SODIUM
     Dosage: 2 G, QD
     Dates: start: 20120625, end: 20120627
  5. LEVOFLOXACIN [Suspect]
     Active Substance: LEVOFLOXACIN
     Indication: Arthritis bacterial
     Dosage: 250 MG,BID
     Dates: start: 20120610, end: 20120629
  6. LEVOFLOXACIN [Suspect]
     Active Substance: LEVOFLOXACIN
     Indication: Arthritis bacterial
     Dosage: 250 MG,BID
     Dates: start: 20120607, end: 20120608
  7. GENTAMICIN SULFATE [Suspect]
     Active Substance: GENTAMICIN SULFATE
     Indication: Arthritis bacterial
     Dosage: 300 MG,QD
     Dates: start: 20120601, end: 20120604
  8. RIFAMPIN [Suspect]
     Active Substance: RIFAMPIN
     Indication: Arthritis bacterial
     Dosage: 600 MG,BID
     Dates: start: 20120604, end: 20120610
  9. FERROUS SULFATE [Concomitant]
     Active Substance: FERROUS SULFATE
     Dosage: UNK
  10. RABEPRAZOLE SODIUM [Concomitant]
     Active Substance: RABEPRAZOLE SODIUM
     Dosage: UNK
  11. FLUINDIONE [Concomitant]
     Active Substance: FLUINDIONE
     Dosage: UNK
  12. NAFRONYL [Concomitant]
     Active Substance: NAFRONYL
     Dosage: UNK
  13. LASIX [Concomitant]
     Active Substance: FUROSEMIDE
     Dosage: UNK
  14. PENTOXIFYLLINE [Concomitant]
     Active Substance: PENTOXIFYLLINE
     Dosage: UNK
  15. PERINDOPRIL [Concomitant]
     Active Substance: PERINDOPRIL
     Dosage: UNK
  16. POTASSIUM CHLORIDE [Concomitant]
     Active Substance: POTASSIUM CHLORIDE
     Dosage: UNK
  17. NEBIVOLOL [Concomitant]
     Active Substance: NEBIVOLOL
     Dosage: UNK

REACTIONS (4)
  - Hyperkalaemia [Fatal]
  - Oliguria [Fatal]
  - Acute kidney injury [Fatal]
  - Tubulointerstitial nephritis [Fatal]

NARRATIVE: CASE EVENT DATE: 20120608
